FAERS Safety Report 7246237-8 (Version None)
Quarter: 2011Q1

REPORT INFORMATION
  Report Type: 
  Country: None (occurrence: None)
  Receive Date: 20110126
  Receipt Date: 20110124
  Transmission Date: 20110831
  Serious: Yes (Hospitalization)
  Sender: FDA-Public Use
  Company Number: AT-NAPPMUNDI-GBR-2010-0007542

PATIENT
  Sex: Male
  Weight: 118 kg

DRUGS (30)
  1. HYDROMORPHONE HCL [Suspect]
     Dosage: 2.1 MG/ML, DAILY
     Dates: start: 20100402, end: 20100504
  2. HYDROMORPHONE HCL [Suspect]
     Dosage: 2.28 MG/ML, DAILY
     Dates: start: 20100504, end: 20100601
  3. FORLAX [Concomitant]
     Indication: CONSTIPATION PROPHYLAXIS
     Dosage: 1 DF, PRN
     Route: 048
     Dates: start: 20100317
  4. HALCION [Concomitant]
     Indication: SLEEP DISORDER
     Dosage: 0.25 MG, UNK
     Route: 048
     Dates: start: 20080813
  5. PROFENID [Concomitant]
     Dosage: UNK
     Route: 048
     Dates: start: 20100618
  6. SPIRIVA [Concomitant]
     Indication: CHRONIC OBSTRUCTIVE PULMONARY DISEASE
     Dosage: 0.18 MG, DAILY
     Route: 055
     Dates: start: 20100322
  7. THEOPHYLLINE [Concomitant]
     Indication: CHRONIC OBSTRUCTIVE PULMONARY DISEASE
     Dosage: 400 MG, DAILY
     Route: 048
     Dates: start: 20100322
  8. LASIX [Concomitant]
     Indication: OEDEMA
     Dosage: UNK
     Dates: start: 20100315
  9. HYDAL 2,6 MG KAPSELN [Suspect]
     Dosage: 2.6 MG, PRN
     Route: 048
     Dates: start: 20100315, end: 20100322
  10. HYDROMORPHONE HCL [Suspect]
     Dosage: 1.7 MG/ML, DAILY
     Route: 065
     Dates: start: 20100318, end: 20100323
  11. HYDROMORPHONE HCL [Suspect]
     Dosage: 2.57 MG/ML, DAILY
     Dates: start: 20100601, end: 20100701
  12. NOVALGIN                           /00169801/ [Suspect]
     Indication: PAIN
     Dosage: 40 DROP, QID
     Route: 048
     Dates: start: 20021120
  13. VENDAL                             /00036303/ [Suspect]
     Dosage: 7.7 MG/ML, DAILY
     Route: 065
     Dates: start: 20091222, end: 20100316
  14. PASSEDAN-NERVENTROPFEN [Concomitant]
     Indication: AUTONOMIC NERVOUS SYSTEM IMBALANCE
     Dosage: 20 DROP, DAILY
     Route: 048
     Dates: start: 20100406
  15. ZOFRAN [Concomitant]
     Indication: NAUSEA
     Dosage: UNK
     Dates: start: 20100315
  16. HYDROMORPHONE HCL [Suspect]
     Dosage: 2.57 MG/ML, DAILY
     Dates: start: 20100323, end: 20100402
  17. HYDROMORPHONE HCL [Suspect]
     Dosage: 3.1 MG/ML, DAILY
     Dates: start: 20100830, end: 20101126
  18. CLONIDINE [Suspect]
     Indication: PAIN
     Dosage: 171 MCG, DAILY
     Route: 037
     Dates: start: 20091222
  19. DOMINAL                            /00018902/ [Concomitant]
     Indication: SLEEP DISORDER
     Dosage: 80 MG, DAILY
     Route: 048
     Dates: start: 20100315
  20. K CL TAB [Concomitant]
     Indication: HYPOKALAEMIA
     Dosage: 1 TABLET, DAILY
     Route: 048
     Dates: start: 20100416
  21. PREGABALIN [Suspect]
     Dosage: 150 MG, BID
     Route: 048
     Dates: start: 20080813
  22. SYMBICORT FORTE [Concomitant]
     Indication: CHRONIC OBSTRUCTIVE PULMONARY DISEASE
     Dosage: UNK, BID
     Route: 055
     Dates: start: 20100322
  23. PROFENID [Concomitant]
     Indication: PAIN
     Dosage: 100 MG, TID
     Route: 048
     Dates: start: 20100610, end: 20100618
  24. HYDAL 2,6 MG KAPSELN [Suspect]
     Indication: PAIN
     Dosage: 5.2 MG, PRN
     Route: 048
     Dates: start: 20100322
  25. VENDAL                             /00036303/ [Suspect]
     Indication: PAIN
     Dosage: 40 MG, PRN
     Route: 048
     Dates: start: 20040223, end: 20100318
  26. HYDROMORPHONE HCL [Suspect]
     Indication: PAIN
     Dosage: 0.85 MG/ML, DAILY
     Route: 037
     Dates: start: 20100316, end: 20100318
  27. HYDROMORPHONE HCL [Suspect]
     Dosage: 2.85 MG/ML, DAILY
     Dates: start: 20100701, end: 20100830
  28. HYDROMORPHONE HCL [Suspect]
     Dosage: 3.4 MG/ML, DAILY
     Dates: start: 20101126
  29. BERODUAL [Concomitant]
     Indication: CHRONIC OBSTRUCTIVE PULMONARY DISEASE
     Dosage: UNK, PRN
     Route: 055
     Dates: start: 20100322
  30. NEXIUM [Concomitant]
     Dosage: 40 MG, UNK
     Route: 048
     Dates: start: 20060323

REACTIONS (9)
  - PAROTID ABSCESS [None]
  - HYPERTONIA [None]
  - HYPOKALAEMIA [None]
  - VISION BLURRED [None]
  - RELAPSING FEVER [None]
  - VERTIGO [None]
  - NAUSEA [None]
  - INADEQUATE ANALGESIA [None]
  - INFLAMMATORY MARKER INCREASED [None]
